FAERS Safety Report 9023300 (Version 1)
Quarter: 2013Q1

REPORT INFORMATION
  Report Type: Spontaneous
  Country: US (occurrence: US)
  Receive Date: 20130120
  Receipt Date: 20130120
  Transmission Date: 20140127
  Serious: No
  Sender: FDA-Public Use
  Company Number: US-ALLERGAN-1213773US

PATIENT
  Sex: 0
  Weight: 72.56 kg

DRUGS (10)
  1. BOTOX? [Suspect]
     Indication: MIGRAINE
     Dosage: 5UNITS BILATERALLY
     Dates: start: 20120828, end: 20120828
  2. BOTOX? [Suspect]
     Indication: TORTICOLLIS
     Dosage: 5 UNITS TO PROCERUS
  3. BOTOX? [Suspect]
     Indication: MUSCLE SPASTICITY
     Dosage: 10UNITS BILATERALLY IN FRONTALIS
  4. BOTOX? [Suspect]
     Dosage: 20 INTO TEMPORAL BILATERALLY
  5. BOTOX? [Suspect]
     Dosage: 15 OCCIPITALIS BILATERALLY
  6. BOTOX? [Suspect]
     Dosage: 10 UNITS CERVICAL PERI SPINAL MUSCLES
  7. BOTOX? [Suspect]
     Dosage: 15 UNITS, TRAPEZOID BILATERALLY
  8. NUCYNTA [Concomitant]
     Indication: PRODUCT USED FOR UNKNOWN INDICATION
  9. ZANAFLEX [Concomitant]
     Indication: PRODUCT USED FOR UNKNOWN INDICATION
  10. TOPAMAX [Concomitant]
     Indication: PRODUCT USED FOR UNKNOWN INDICATION

REACTIONS (2)
  - Fatigue [Unknown]
  - Diarrhoea [Unknown]
